FAERS Safety Report 8464865-9 (Version None)
Quarter: 2012Q2

REPORT INFORMATION
  Report Type: 
  Country: None (occurrence: None)
  Receive Date: 20120626
  Receipt Date: 20120620
  Transmission Date: 20120825
  Serious: Yes (Death)
  Sender: FDA-Public Use
  Company Number: US-ELI_LILLY_AND_COMPANY-US201206006594

PATIENT
  Sex: Male

DRUGS (4)
  1. ALIMTA [Suspect]
     Dosage: 800 MG, UNK
     Dates: start: 20110729
  2. ZOMETA [Concomitant]
     Dosage: UNK
     Dates: start: 20110819
  3. ALIMTA [Suspect]
     Indication: LUNG CANCER METASTATIC
     Dosage: 800 MG, UNK
     Dates: start: 20110705
  4. ALIMTA [Suspect]
     Dosage: 800 MG, UNK
     Dates: start: 20110819, end: 20110819

REACTIONS (1)
  - DEATH [None]
